FAERS Safety Report 5035292-1 (Version None)
Quarter: 2006Q2

REPORT INFORMATION
  Report Type: 
  Country: None (occurrence: None)
  Receive Date: 20060519
  Receipt Date: 20060317
  Transmission Date: 20061013
  Serious: No
  Sender: FDA-Public Use
  Company Number: TPA2006A00478

PATIENT
  Sex: Female

DRUGS (2)
  1. ROZEREM [Suspect]
     Dosage: PER ORAL
     Route: 048
  2. DIFLUCAN [Suspect]

REACTIONS (3)
  - ADVERSE EVENT [None]
  - AGEUSIA [None]
  - DRUG INTERACTION [None]
